FAERS Safety Report 24123526 (Version 1)
Quarter: 2024Q3

REPORT INFORMATION
  Report Type: Spontaneous
  Country: US (occurrence: US)
  Receive Date: 20240723
  Receipt Date: 20240723
  Transmission Date: 20241017
  Serious: No
  Sender: OTSUKA
  Company Number: US-OTSUKA-2024_004476

PATIENT
  Age: 67 Year
  Sex: Female
  Weight: 63.5 kg

DRUGS (3)
  1. REXULTI [Suspect]
     Active Substance: BREXPIPRAZOLE
     Indication: Anxiety
     Dosage: 0.5 MG ONCE DAILY
     Route: 065
     Dates: start: 2023
  2. REXULTI [Suspect]
     Active Substance: BREXPIPRAZOLE
     Indication: Depression
     Dosage: 1 MG ONCE DAILY
     Route: 065
  3. REXULTI [Suspect]
     Active Substance: BREXPIPRAZOLE
     Dosage: 0.5 MG ONCE DAILY
     Route: 065

REACTIONS (5)
  - Urinary incontinence [Unknown]
  - Feeling abnormal [Unknown]
  - Tremor [Unknown]
  - Inability to afford medication [Unknown]
  - Product use in unapproved indication [Unknown]
